FAERS Safety Report 20551387 (Version 1)
Quarter: 2022Q1

REPORT INFORMATION
  Report Type: Spontaneous
  Country: FR (occurrence: FR)
  Receive Date: 20220304
  Receipt Date: 20220304
  Transmission Date: 20220423
  Serious: Yes (Hospitalization)
  Sender: FDA-Public Use
  Company Number: None

PATIENT
  Age: 83 Year
  Sex: Female
  Weight: 82 kg

DRUGS (9)
  1. METFORMIN PAMOATE [Suspect]
     Active Substance: METFORMIN PAMOATE
     Indication: Type 2 diabetes mellitus
     Dosage: 1GM
     Route: 048
     Dates: end: 20211007
  2. CANDESARTAN [Suspect]
     Active Substance: CANDESARTAN
     Indication: Hypertension
     Dosage: CANDESARTAN BIOGARAN 16 MG, SCORED TABLET, 1DF
     Route: 048
     Dates: end: 20211007
  3. CLOXACILLIN SODIUM [Suspect]
     Active Substance: CLOXACILLIN SODIUM
     Indication: Arthritis bacterial
     Dosage: ORBENINE 1 G, POWDER FOR SOLUTION FOR INJECTION (IV), 8GM
     Route: 042
     Dates: start: 20211005, end: 20211009
  4. ATORVASTATIN [Suspect]
     Active Substance: ATORVASTATIN
     Indication: Dyslipidaemia
     Dosage: ATORVASTATIN BIOGARAN 10 MG FILM-COATED TABLETS, 1DF
     Route: 048
     Dates: end: 20211007
  5. MIRTAZAPINE [Suspect]
     Active Substance: MIRTAZAPINE
     Indication: Product used for unknown indication
     Dosage: MIRTAZAPINE BLUEFISH 15 MG, ORODISPERSIBLE TABLET, 1DF
     Route: 048
     Dates: end: 20211007
  6. LOVENOX [Suspect]
     Active Substance: ENOXAPARIN SODIUM
     Indication: Thrombosis prophylaxis
     Dosage: LOVENOX 2000 ANTI-XA IU/0.2 ML, SOLUTION FOR INJECTION IN CARTRIDGE, 1DF
     Route: 058
     Dates: start: 20211004, end: 20211007
  7. ACETAMINOPHEN [Concomitant]
     Active Substance: ACETAMINOPHEN
  8. FOLIC ACID [Concomitant]
     Active Substance: FOLIC ACID
  9. TRAMADOL HYDROCHLORIDE [Concomitant]
     Active Substance: TRAMADOL HYDROCHLORIDE

REACTIONS (1)
  - Acute kidney injury [Recovered/Resolved]

NARRATIVE: CASE EVENT DATE: 20211007
